FAERS Safety Report 15140098 (Version 2)
Quarter: 2018Q3

REPORT INFORMATION
  Report Type: Spontaneous
  Country: DE (occurrence: DE)
  Receive Date: 20180713
  Receipt Date: 20180903
  Transmission Date: 20181010
  Serious: Yes (Disabling)
  Sender: FDA-Public Use
  Company Number: DE-AUROBINDO-AUR-APL-2018-035432

PATIENT
  Age: 16 Year
  Sex: Female

DRUGS (5)
  1. FLUOXETIN [Suspect]
     Active Substance: FLUOXETINE HYDROCHLORIDE
     Indication: TENSION
     Dosage: 20 MILLIGRAM
     Route: 048
     Dates: start: 20170901, end: 20170912
  2. CITALOPRAM [Suspect]
     Active Substance: CITALOPRAM HYDROBROMIDE
     Indication: TENSION
     Dosage: 20 MG, QMO
     Route: 048
     Dates: start: 20170917, end: 20180118
  3. MIRTAZAPINE. [Suspect]
     Active Substance: MIRTAZAPINE
     Indication: TENSION
     Dosage: 15 MG, QD
     Route: 048
     Dates: start: 20171023, end: 20180118
  4. PIPAMPERON [Suspect]
     Active Substance: PIPAMPERONE HYDROCHLORIDE
     Indication: TENSION
     Dosage: 40 MILLIGRAM, DAILY (DAILY DOSE: 40 MG MILLGRAM(S) EVERY DAYS)
     Route: 048
     Dates: start: 20171016, end: 20171023
  5. PRONEURIN [Suspect]
     Active Substance: PROMETHAZINE HYDROCHLORIDE
     Indication: TENSION
     Dosage: 75 MG, QD
     Route: 048
     Dates: start: 20171117, end: 20171128

REACTIONS (1)
  - Thyroiditis [Unknown]

NARRATIVE: CASE EVENT DATE: 20180129
